FAERS Safety Report 8083870-8 (Version None)
Quarter: 2012Q1

REPORT INFORMATION
  Report Type: 
  Country: None (occurrence: None)
  Receive Date: 20120128
  Receipt Date: 20110203
  Transmission Date: 20120608
  Serious: No
  Sender: FDA-Public Use
  Company Number: US-ABBOTT-11P-163-0703176-00

PATIENT
  Sex: Female
  Weight: 56.296 kg

DRUGS (24)
  1. TRAZODONE HCL [Concomitant]
     Indication: DEPRESSION
  2. NEXIUM [Concomitant]
     Indication: GASTROOESOPHAGEAL REFLUX DISEASE
  3. PROGESTERONE [Concomitant]
     Indication: MENOPAUSE
  4. IMITREX [Concomitant]
     Indication: MIGRAINE
  5. PREDNISONE TAB [Suspect]
     Indication: SYSTEMIC LUPUS ERYTHEMATOSUS
  6. LEUCOVORIN CALCIUM [Concomitant]
     Indication: VITAMIN SUPPLEMENTATION
     Dosage: TAKEN 12 HOURS POST METHOTREXATE DOSE ON WEDNESDAYS
  7. PREDNISONE TAB [Suspect]
     Indication: RHEUMATOID ARTHRITIS
  8. BONIVA [Concomitant]
     Indication: OSTEOPENIA
  9. BONIVA [Concomitant]
     Indication: OSTEOARTHRITIS
  10. TRAZODONE HCL [Concomitant]
     Indication: INSOMNIA
  11. SINGULAIR [Concomitant]
     Indication: DYSPNOEA
  12. HYDROXYCHLOROQUINE SULFATE [Concomitant]
     Indication: SYSTEMIC LUPUS ERYTHEMATOSUS
  13. FOLIC ACID [Concomitant]
     Indication: MENOPAUSE
  14. NEXIUM [Concomitant]
     Indication: STRESS ULCER
  15. METHOTREXATE [Suspect]
     Indication: SYSTEMIC LUPUS ERYTHEMATOSUS
  16. OMNARIS [Concomitant]
     Indication: UPPER-AIRWAY COUGH SYNDROME
  17. NEXIUM [Concomitant]
     Indication: ULCER HAEMORRHAGE
  18. HUMIRA [Suspect]
     Indication: RHEUMATOID ARTHRITIS
     Dates: start: 20110101
  19. NORCO [Concomitant]
     Indication: ARTHRALGIA
  20. INDOMETHACIN [Concomitant]
     Indication: ARTHRALGIA
  21. VIVELLE [Concomitant]
     Indication: MENOPAUSE
  22. METHOTREXATE [Suspect]
     Indication: RHEUMATOID ARTHRITIS
     Dosage: EVERY WEDNESDAY
     Dates: start: 20070101
  23. EFFEXOR [Concomitant]
     Indication: DEPRESSION
  24. FOLIC ACID [Concomitant]
     Indication: SYSTEMIC LUPUS ERYTHEMATOSUS

REACTIONS (4)
  - JOINT SWELLING [None]
  - WEIGHT INCREASED [None]
  - INCREASED APPETITE [None]
  - NAUSEA [None]
